FAERS Safety Report 8572701-5 (Version None)
Quarter: 2012Q3

REPORT INFORMATION
  Report Type: 
  Country: None (occurrence: None)
  Receive Date: 20120806
  Receipt Date: 20120730
  Transmission Date: 20120928
  Serious: Yes (Other)
  Sender: FDA-Public Use
  Company Number: BR-PFIZER INC-2012185670

PATIENT
  Age: 75 Year
  Sex: Female
  Weight: 45 kg

DRUGS (4)
  1. SPIRIVA [Concomitant]
     Indication: SMOKING CESSATION THERAPY
     Dosage: UNK
  2. CALDE [Concomitant]
     Indication: OSTEOPOROSIS
  3. XALATAN [Suspect]
     Indication: GLAUCOMA
     Dosage: 3 UG, 1X/DAY
     Route: 047
     Dates: start: 20111209
  4. ALENIA [Concomitant]
     Indication: SMOKING CESSATION THERAPY
     Dosage: UNK

REACTIONS (4)
  - INCORRECT STORAGE OF DRUG [None]
  - VISUAL ACUITY REDUCED [None]
  - GLAUCOMA [None]
  - EYE IRRITATION [None]
